FAERS Safety Report 9255027 (Version 1)
Quarter: 2013Q2

REPORT INFORMATION
  Report Type: Report from Study
  Country: CA (occurrence: CA)
  Receive Date: 20130425
  Receipt Date: 20130425
  Transmission Date: 20140414
  Serious: Yes (Hospitalization)
  Sender: FDA-Public Use
  Company Number: CA-JNJFOC-20130410732

PATIENT
  Age: 69 Year
  Sex: Female
  Weight: 66 kg

DRUGS (9)
  1. REMICADE [Suspect]
     Indication: CROHN^S DISEASE
     Route: 042
     Dates: start: 20130108
  2. REMICADE [Suspect]
     Indication: CROHN^S DISEASE
     Route: 042
     Dates: start: 20121229
  3. PENTASA [Concomitant]
     Dosage: 2 TABLETS
     Route: 048
  4. MICARDIS [Concomitant]
     Route: 065
  5. SYNTHROID [Concomitant]
     Route: 065
  6. PREVACID [Concomitant]
     Route: 065
  7. APO-BROMAZEPAM [Concomitant]
     Route: 065
  8. BUSCOPAN [Concomitant]
     Route: 065
  9. CORTISONE [Concomitant]
     Dosage: TAKEN AS NECESSARY ON BACK AND RIGHT KNEE
     Route: 065

REACTIONS (1)
  - Breast mass [Recovered/Resolved]
